FAERS Safety Report 7283425-9 (Version None)
Quarter: 2011Q1

REPORT INFORMATION
  Report Type: 
  Country: None (occurrence: None)
  Receive Date: 20110209
  Receipt Date: 20101029
  Transmission Date: 20110831
  Serious: No
  Sender: FDA-Public Use
  Company Number: A0890945A

PATIENT
  Sex: Female

DRUGS (1)
  1. PAXIL [Suspect]
     Indication: DEPRESSION

REACTIONS (4)
  - LOSS OF EMPLOYMENT [None]
  - DRUG INEFFECTIVE [None]
  - DEPRESSION [None]
  - PERFORMANCE STATUS DECREASED [None]
